FAERS Safety Report 8267381-2 (Version None)
Quarter: 2012Q2

REPORT INFORMATION
  Report Type: 
  Country: None (occurrence: None)
  Receive Date: 20120409
  Receipt Date: 20120403
  Transmission Date: 20120825
  Serious: Yes (Other)
  Sender: FDA-Public Use
  Company Number: PHEH2012US004312

PATIENT
  Age: 79 Year
  Sex: Female

DRUGS (2)
  1. RECLAST [Suspect]
     Dosage: UNK UKN, UNK
     Route: 042
     Dates: start: 20090101
  2. EYE DROPS [Concomitant]

REACTIONS (1)
  - INTRAOCULAR PRESSURE INCREASED [None]
